FAERS Safety Report 9276896 (Version 1)
Quarter: 2013Q2

REPORT INFORMATION
  Report Type: Spontaneous
  Country: GB (occurrence: GB)
  Receive Date: 20130507
  Receipt Date: 20130507
  Transmission Date: 20140414
  Serious: Yes (Other)
  Sender: FDA-Public Use
  Company Number: GB-PFIZER INC-2013138016

PATIENT
  Age: 52 Year
  Sex: Male
  Weight: 86 kg

DRUGS (3)
  1. LIPITOR [Suspect]
     Dosage: 10 MG, 1X/DAY
     Dates: start: 20130407, end: 20130408
  2. METFORMIN [Concomitant]
     Indication: DIABETES MELLITUS
     Dosage: 500 MG, 2X/DAY
     Dates: start: 201211
  3. LIPITOR [Concomitant]
     Dosage: 10 MG, 1X/DAY

REACTIONS (5)
  - Product substitution issue [Unknown]
  - Lip swelling [Recovered/Resolved]
  - Oedema mouth [Recovered/Resolved]
  - Swelling face [Recovered/Resolved]
  - Hypoaesthesia [Recovered/Resolved]
